FAERS Safety Report 6693853-8 (Version None)
Quarter: 2010Q2

REPORT INFORMATION
  Report Type: 
  Country: None (occurrence: None)
  Receive Date: 20100423
  Receipt Date: 20100409
  Transmission Date: 20101027
  Serious: Yes (Disabling, Other)
  Sender: FDA-Public Use
  Company Number: PHHY2010DE22832

PATIENT
  Sex: Female
  Weight: 96 kg

DRUGS (7)
  1. ALISKIREN ALI+ [Suspect]
     Indication: HYPERTENSION
     Dosage: 300 MG, PER DAY
     Route: 048
     Dates: start: 20090212
  2. ALISKIREN ALI+ [Suspect]
     Dosage: UNK
  3. HYDROCHLOROTHIAZIDE [Suspect]
     Indication: HYPERTENSION
     Dosage: 25 MG, PER DAY
     Route: 048
     Dates: start: 20090113
  4. RAMIPRIL [Concomitant]
     Indication: HYPERTENSION
     Dosage: 5 MG, PER DAY
     Route: 048
     Dates: start: 20090113
  5. AMLODIPINE [Concomitant]
     Indication: HYPERTENSION
     Dosage: 5 MG, PER DAY
     Route: 048
     Dates: start: 20090120
  6. ASPIRIN [Concomitant]
     Indication: CEREBROVASCULAR ACCIDENT
     Dosage: 100 MG, PER DAY
     Route: 048
     Dates: start: 20090122
  7. SIMVASTATIN [Concomitant]
     Indication: HYPERCHOLESTEROLAEMIA
     Dosage: 20 MG, PER DAY
     Route: 048
     Dates: start: 20090311

REACTIONS (9)
  - BLOOD PRESSURE INCREASED [None]
  - BREAST CANCER [None]
  - CAROTID ARTERY ANEURYSM [None]
  - CAROTID ARTERY DISSECTION [None]
  - CEREBROVASCULAR ACCIDENT [None]
  - CHOLELITHIASIS [None]
  - ECG SIGNS OF VENTRICULAR HYPERTROPHY [None]
  - HEART RATE INCREASED [None]
  - HYPERCHOLESTEROLAEMIA [None]
